FAERS Safety Report 5514433-3 (Version None)
Quarter: 2007Q4

REPORT INFORMATION
  Report Type: 
  Country: None (occurrence: None)
  Receive Date: 20071113
  Receipt Date: 20070518
  Transmission Date: 20080405
  Serious: No
  Sender: FDA-Public Use
  Company Number: A0652000A

PATIENT
  Age: 65 Year
  Sex: Female

DRUGS (6)
  1. COREG [Suspect]
     Indication: ARRHYTHMIA
     Dosage: 3.125MG TWICE PER DAY
     Route: 048
     Dates: start: 20070201, end: 20070508
  2. COREG CR [Suspect]
     Indication: ARRHYTHMIA
     Dosage: 10MG PER DAY
     Route: 048
     Dates: start: 20070508
  3. SYNTHROID [Concomitant]
  4. PREMARIN [Concomitant]
  5. PROGESTERONE [Concomitant]
  6. POTASSIUM CHLORIDE [Concomitant]

REACTIONS (5)
  - ANXIETY [None]
  - BLOOD PRESSURE INCREASED [None]
  - DRUG INEFFECTIVE [None]
  - HEART RATE INCREASED [None]
  - PALPITATIONS [None]
